FAERS Safety Report 25674269 (Version 2)
Quarter: 2025Q3

REPORT INFORMATION
  Report Type: Spontaneous
  Country: US (occurrence: US)
  Receive Date: 20250813
  Receipt Date: 20250923
  Transmission Date: 20251021
  Serious: Yes (Other)
  Sender: ROCHE
  Company Number: US-ROCHE-10000362290

PATIENT
  Age: 79 Year
  Sex: Male

DRUGS (4)
  1. TNKASE [Suspect]
     Active Substance: TENECTEPLASE
     Indication: Ischaemic stroke
     Route: 042
     Dates: start: 20250715, end: 20250715
  2. FAMOTIDINE [Concomitant]
     Active Substance: FAMOTIDINE
     Route: 042
  3. IOPAMIDOL [Concomitant]
     Active Substance: IOPAMIDOL
     Route: 042
  4. LABETALOL [Concomitant]
     Active Substance: LABETALOL
     Route: 042

REACTIONS (1)
  - Cerebral haemorrhage [Unknown]

NARRATIVE: CASE EVENT DATE: 20250715
